FAERS Safety Report 20017431 (Version 1)
Quarter: 2021Q4

REPORT INFORMATION
  Report Type: Spontaneous
  Country: IT (occurrence: IT)
  Receive Date: 20211030
  Receipt Date: 20211030
  Transmission Date: 20220303
  Serious: Yes (Hospitalization)
  Sender: FDA-Public Use
  Company Number: None

PATIENT
  Age: 61 Year
  Sex: Male

DRUGS (1)
  1. OXALIPLATIN [Suspect]
     Active Substance: OXALIPLATIN
     Indication: Adenocarcinoma gastric
     Dosage: CONCENTRATE FOR SOLUTION FOR INJECTION/INFUSION , 150 MG
     Route: 040
     Dates: start: 20211012, end: 20211012

REACTIONS (3)
  - Dyspnoea [Unknown]
  - Malaise [Unknown]
  - Retching [Unknown]

NARRATIVE: CASE EVENT DATE: 20211012
